FAERS Safety Report 19593742 (Version 2)
Quarter: 2021Q3

REPORT INFORMATION
  Report Type: Report from Study
  Country: FR (occurrence: FR)
  Receive Date: 20210722
  Receipt Date: 20210813
  Transmission Date: 20211014
  Serious: Yes (Death, Hospitalization, Other)
  Sender: FDA-Public Use
  Company Number: FR-BRISTOL-MYERS SQUIBB COMPANY-BMS-2021-069594

PATIENT
  Age: 53 Year
  Sex: Female

DRUGS (1)
  1. NIVOLUMAB [Suspect]
     Active Substance: NIVOLUMAB
     Indication: SQUAMOUS CELL CARCINOMA OF HEAD AND NECK
     Route: 065

REACTIONS (5)
  - Malignant neoplasm progression [Fatal]
  - Autonomic nervous system imbalance [Unknown]
  - General physical health deterioration [Fatal]
  - Cachexia [Unknown]
  - Pain [Unknown]

NARRATIVE: CASE EVENT DATE: 20210619
